FAERS Safety Report 5096748-9 (Version None)
Quarter: 2006Q3

REPORT INFORMATION
  Report Type: 
  Country: None (occurrence: None)
  Receive Date: 20060831
  Receipt Date: 20060822
  Transmission Date: 20061208
  Serious: Yes (Other)
  Sender: FDA-Public Use
  Company Number: 2006US001857

PATIENT
  Sex: Female

DRUGS (3)
  1. AMBISOME [Suspect]
     Indication: ASPERGILLOSIS
     Dosage: 100 MG, TOTAL DOSE
  2. GUNGUARD (MICAFUNGIN SODIUM) [Concomitant]
  3. PREDNISOLONE [Concomitant]

REACTIONS (3)
  - BLOOD SODIUM DECREASED [None]
  - DELIRIUM [None]
  - OEDEMA PERIPHERAL [None]
